FAERS Safety Report 19521189 (Version 2)
Quarter: 2022Q2

REPORT INFORMATION
  Report Type: Report from Study
  Country: IN (occurrence: IN)
  Receive Date: 20210712
  Receipt Date: 20220518
  Transmission Date: 20220721
  Serious: Yes (Other)
  Sender: FDA-Public Use
  Company Number: IN-NOVARTISPH-NVSC2021IN150276

PATIENT
  Age: 56 Year
  Sex: Female

DRUGS (1)
  1. RIBOCICLIB [Suspect]
     Active Substance: RIBOCICLIB
     Indication: Breast cancer metastatic
     Dosage: 200 MG, QD
     Route: 065
     Dates: start: 20210209, end: 20210425

REACTIONS (2)
  - Renal impairment [Unknown]
  - Headache [Unknown]

NARRATIVE: CASE EVENT DATE: 20210425
